FAERS Safety Report 5735847-2 (Version None)
Quarter: 2008Q2

REPORT INFORMATION
  Report Type: 
  Country: None (occurrence: None)
  Receive Date: 20080509
  Receipt Date: 20080509
  Transmission Date: 20081010
  Serious: Yes (Hospitalization)
  Sender: FDA-Public Use
  Company Number: None

PATIENT
  Sex: Male
  Weight: 137 kg

DRUGS (2)
  1. LOVENOX [Suspect]
     Indication: ATRIAL FIBRILLATION
     Dosage: 140 MG Q12H SQ
     Route: 058
     Dates: start: 20080426, end: 20080505
  2. LOVENOX [Suspect]
     Dosage: 120 Q12H SQ
     Route: 058
     Dates: start: 20080505, end: 20080506

REACTIONS (1)
  - RETROPERITONEAL HAEMORRHAGE [None]
